FAERS Safety Report 8461690-X (Version None)
Quarter: 2012Q2

REPORT INFORMATION
  Report Type: 
  Country: None (occurrence: None)
  Receive Date: 20120625
  Receipt Date: 20120614
  Transmission Date: 20120825
  Serious: Yes (Other)
  Sender: FDA-Public Use
  Company Number: CA-JNJFOC-20120607736

PATIENT
  Sex: Female
  Weight: 55 kg

DRUGS (2)
  1. REMICADE [Suspect]
     Indication: COLITIS ULCERATIVE
     Route: 042
     Dates: start: 20120101
  2. REMICADE [Suspect]
     Route: 042
     Dates: start: 20060101

REACTIONS (2)
  - FALL [None]
  - JOINT DISLOCATION [None]
